FAERS Safety Report 6390983-5 (Version None)
Quarter: 2009Q4

REPORT INFORMATION
  Report Type: 
  Country: None (occurrence: None)
  Receive Date: 20091006
  Receipt Date: 20090925
  Transmission Date: 20100525
  Serious: Yes (Death, Hospitalization)
  Sender: FDA-Public Use
  Company Number: US-ELI_LILLY_AND_COMPANY-US200909006063

PATIENT
  Sex: Male

DRUGS (3)
  1. CYMBALTA [Suspect]
     Indication: PAIN
     Dosage: 60 MG, 2/D
     Dates: start: 20090611, end: 20090611
  2. SEPTRA [Concomitant]
  3. PROMETHAZINE [Concomitant]

REACTIONS (4)
  - DEATH [None]
  - HOSPITALISATION [None]
  - MALAISE [None]
  - OFF LABEL USE [None]
